FAERS Safety Report 15770947 (Version 2)
Quarter: 2019Q1

REPORT INFORMATION
  Report Type: Spontaneous
  Country: US (occurrence: US)
  Receive Date: 20181228
  Receipt Date: 20190104
  Transmission Date: 20190417
  Serious: Yes (Disabling, Other)
  Sender: FDA-Public Use
  Company Number: US-PFIZER INC-2018522328

PATIENT
  Age: 71 Year
  Sex: Female

DRUGS (1)
  1. VANCOMYCIN HCL [Suspect]
     Active Substance: VANCOMYCIN HYDROCHLORIDE
     Dosage: 0.25 MG, UNK, INTRACAMERAL (0.25 MG) AT BOTH SURGERIES
     Route: 047

REACTIONS (5)
  - Haemorrhagic vasculitis [Recovering/Resolving]
  - Type IV hypersensitivity reaction [Recovering/Resolving]
  - Retinal vascular occlusion [Recovering/Resolving]
  - Optic atrophy [Recovering/Resolving]
  - Blindness [Not Recovered/Not Resolved]
